FAERS Safety Report 12996136 (Version 1)
Quarter: 2016Q4

REPORT INFORMATION
  Report Type: Other
  Country: GB (occurrence: NL)
  Receive Date: 20161202
  Receipt Date: 20161202
  Transmission Date: 20170207
  Serious: Yes (Life-Threatening, Other)
  Sender: FDA-Public Use
  Company Number: NL-INTERNATIONAL MEDICATION SYSTEMS, LIMITED-1060359

PATIENT
  Age: 12 Day
  Sex: Male
  Weight: 3.7 kg

DRUGS (2)
  1. EMLA [Suspect]
     Active Substance: LIDOCAINE\PRILOCAINE
     Route: 061
  2. LIDOCAINE 1% [Suspect]
     Active Substance: LIDOCAINE

REACTIONS (2)
  - Acidosis [Recovered/Resolved]
  - Methaemoglobinaemia [Recovered/Resolved]
